FAERS Safety Report 13457111 (Version 1)
Quarter: 2017Q2

REPORT INFORMATION
  Report Type: Spontaneous
  Country: DE (occurrence: DE)
  Receive Date: 20170419
  Receipt Date: 20170419
  Transmission Date: 20170830
  Serious: Yes (Death)
  Sender: FDA-Public Use
  Company Number: DE-ROCHE-1919415

PATIENT
  Age: 89 Year
  Sex: Female

DRUGS (8)
  1. PANTOPRAZOL [Concomitant]
     Active Substance: PANTOPRAZOLE SODIUM
     Route: 048
  2. PIPERACILLIN/TAZOBACTAM [Concomitant]
     Active Substance: PIPERACILLIN SODIUM\TAZOBACTAM SODIUM
     Indication: PNEUMONIA
     Route: 042
     Dates: start: 20170218, end: 20170221
  3. VANCOMYCIN [Concomitant]
     Active Substance: VANCOMYCIN
     Route: 065
     Dates: start: 20170311, end: 20170312
  4. CEFTRIAXONE. [Suspect]
     Active Substance: CEFTRIAXONE
     Indication: CHOLECYSTITIS ACUTE
     Route: 042
     Dates: start: 20170227, end: 20170317
  5. METRONIDAZOL [Concomitant]
     Active Substance: METRONIDAZOLE
     Indication: CHOLECYSTITIS
     Route: 042
     Dates: start: 20170227, end: 20170310
  6. AMLODIPIN [Concomitant]
     Active Substance: AMLODIPINE BESYLATE
     Indication: HYPERTENSION
     Route: 048
  7. TORASEMID [Concomitant]
     Active Substance: TORSEMIDE
     Indication: HYPERTENSION
     Route: 048
  8. METOPROLOL. [Concomitant]
     Active Substance: METOPROLOL
     Indication: HYPERTENSION
     Route: 048

REACTIONS (4)
  - Hypokalaemia [Fatal]
  - Clostridium difficile colitis [Fatal]
  - Pseudomembranous colitis [Fatal]
  - Dehydration [Fatal]

NARRATIVE: CASE EVENT DATE: 20170301
